FAERS Safety Report 14027759 (Version 5)
Quarter: 2018Q4

REPORT INFORMATION
  Report Type: Spontaneous
  Country: KR (occurrence: KR)
  Receive Date: 20170929
  Receipt Date: 20181108
  Transmission Date: 20190204
  Serious: Yes (Hospitalization, Other)
  Sender: FDA-Public Use
  Company Number: KR-009507513-1709KOR013063

PATIENT
  Age: 72 Year
  Sex: Female
  Weight: 49.1 kg

DRUGS (24)
  1. NOXAFIL [Suspect]
     Active Substance: POSACONAZOLE
     Dosage: 300 MG, ONCE A DAY
     Route: 048
     Dates: start: 20170809, end: 20170812
  2. NORPIN INJECTION [Concomitant]
     Indication: HYPOTENSION
     Dosage: 4 MILLIGRAM, BID
     Route: 042
     Dates: start: 20170830, end: 20170913
  3. NOXAFIL [Suspect]
     Active Substance: POSACONAZOLE
     Dosage: 300 MG, ONCE A DAY
     Route: 048
     Dates: start: 20170830, end: 20171002
  4. MEDILAC-DS [Concomitant]
     Indication: GASTROENTERITIS
     Dosage: 1 CAPSULE, BID
     Route: 048
     Dates: start: 20170807, end: 20170826
  5. BEECOM [Concomitant]
     Indication: PROPHYLAXIS
     Dosage: 1 TABLET, QD
     Route: 048
     Dates: start: 20170808, end: 20170826
  6. AMBISOME [Concomitant]
     Active Substance: AMPHOTERICIN B
     Indication: PNEUMONIA
     Dosage: 150 MILLIGRAM, QD
     Route: 042
     Dates: start: 20171003, end: 20171016
  7. FRAGMIN [Concomitant]
     Active Substance: DALTEPARIN SODIUM
     Indication: PULMONARY EMBOLISM
     Dosage: 10000 IU (1 DF), QD
     Route: 058
     Dates: start: 20170808, end: 20170829
  8. VANCOMYCIN [Concomitant]
     Active Substance: VANCOMYCIN
     Indication: ANTIBIOTIC PROPHYLAXIS
     Dosage: 0.5 DF, QD
     Route: 048
     Dates: start: 20170913, end: 20171002
  9. TAZOPERAN [Concomitant]
     Indication: PNEUMONIA
     Dosage: 4.5 GRAM, QD
     Route: 042
     Dates: start: 20170816, end: 20170821
  10. AMIKACIN SULFATE. [Concomitant]
     Active Substance: AMIKACIN SULFATE
     Indication: PNEUMONIA
     Dosage: 250 MILLIGRAM, QD
     Route: 042
     Dates: start: 20170922, end: 20171001
  11. TAZOPERAN [Concomitant]
     Indication: PNEUMONIA
     Dosage: 4.5 GRAM, QID
     Route: 042
     Dates: start: 20170828, end: 20170915
  12. FLASINYL [Concomitant]
     Indication: PNEUMONIA
     Dosage: 500 MILLIGRAM, TID
     Route: 048
     Dates: start: 20170616, end: 20170825
  13. COLISTIMETHATE SODIUM. [Concomitant]
     Active Substance: COLISTIMETHATE SODIUM
     Indication: PNEUMONIA
     Dosage: 150 MILLIGRAM, QD
     Route: 042
     Dates: start: 20170922, end: 20171001
  14. NOXAFIL [Suspect]
     Active Substance: POSACONAZOLE
     Indication: ANTIFUNGAL PROPHYLAXIS
     Dosage: 300 MG, TWICE A DAY
     Route: 048
     Dates: start: 20170808, end: 20170808
  15. CEFTRIAXONE SODIUM. [Concomitant]
     Active Substance: CEFTRIAXONE SODIUM
     Indication: ANTIBIOTIC PROPHYLAXIS
     Dosage: 2 G, QD
     Route: 042
     Dates: start: 20170804, end: 20170810
  16. SMECTA [Concomitant]
     Active Substance: MONTMORILLONITE
     Indication: DIARRHOEA
  17. MEDILAC-DS [Concomitant]
     Indication: DIARRHOEA
  18. GRASIN [Concomitant]
     Indication: NEUTROPENIA
     Dosage: 300 MICROGRAM, QD
     Route: 058
     Dates: start: 20170915, end: 20171006
  19. CEFTRIAXONE SODIUM. [Concomitant]
     Active Substance: CEFTRIAXONE SODIUM
     Indication: PNEUMONIA
  20. DACOGEN [Concomitant]
     Active Substance: DECITABINE
     Indication: ACUTE MYELOID LEUKAEMIA
     Dosage: 30 MG, QD
     Route: 042
     Dates: start: 20170808, end: 20170812
  21. BANAN [Concomitant]
     Active Substance: CEFPODOXIME PROXETIL
     Indication: PNEUMONIA
     Dosage: 200 MILLIGRAM, BID
     Route: 048
     Dates: start: 20170821, end: 20170826
  22. MEROPENEM. [Concomitant]
     Active Substance: MEROPENEM
     Indication: PNEUMONIA
     Dosage: 1000 MILLIGRAM, TID
     Route: 042
     Dates: start: 20170904, end: 20171020
  23. SMECTA [Concomitant]
     Active Substance: MONTMORILLONITE
     Indication: GASTROENTERITIS
     Dosage: 20 ML, TID
     Route: 048
     Dates: start: 20170804, end: 20170826
  24. DENOGAN [Concomitant]
     Active Substance: PROPACETAMOL HYDROCHLORIDE
     Indication: NEUTROPENIA
     Dosage: 1 GRAM, QD
     Route: 042
     Dates: start: 20170828, end: 20171006

REACTIONS (17)
  - Bacteraemia [Recovered/Resolved]
  - Stomatitis [Recovered/Resolved]
  - Dehydration [Unknown]
  - Diarrhoea [Recovered/Resolved]
  - Febrile neutropenia [Recovered/Resolved]
  - Asthenia [Recovered/Resolved]
  - Oral fungal infection [Recovered/Resolved]
  - Pancytopenia [Recovered/Resolved]
  - Pneumonia [Unknown]
  - Neutropenia [Recovered/Resolved]
  - Neutropenia [Recovered/Resolved]
  - Dyspnoea [Recovered/Resolved]
  - Hypotension [Recovered/Resolved]
  - Decreased appetite [Recovered/Resolved]
  - Azotaemia [Unknown]
  - Febrile neutropenia [Recovered/Resolved]
  - Stomatitis [Recovered/Resolved]

NARRATIVE: CASE EVENT DATE: 2017
